FAERS Safety Report 21748758 (Version 1)
Quarter: 2022Q4

REPORT INFORMATION
  Report Type: Report from Study
  Country: US (occurrence: US)
  Receive Date: 20221219
  Receipt Date: 20221219
  Transmission Date: 20230113
  Serious: No
  Sender: FDA-Public Use
  Company Number: US-ABBVIE-4223425

PATIENT
  Sex: Male

DRUGS (1)
  1. HUMIRA [Suspect]
     Active Substance: ADALIMUMAB
     Indication: Psoriatic arthropathy
     Dosage: CF, STRENGTH: 40MG
     Route: 058

REACTIONS (9)
  - Blister [Not Recovered/Not Resolved]
  - Arthralgia [Recovering/Resolving]
  - Skin exfoliation [Recovering/Resolving]
  - Loss of personal independence in daily activities [Recovering/Resolving]
  - Hyperhidrosis [Recovering/Resolving]
  - Blood blister [Recovering/Resolving]
  - Gait disturbance [Recovering/Resolving]
  - Amnesia [Not Recovered/Not Resolved]
  - Peripheral swelling [Recovering/Resolving]
